FAERS Safety Report 10080927 (Version 1)
Quarter: 2014Q2

REPORT INFORMATION
  Report Type: Spontaneous
  Country: GB (occurrence: GB)
  Receive Date: 20140416
  Receipt Date: 20140416
  Transmission Date: 20141212
  Serious: Yes (Other)
  Sender: FDA-Public Use
  Company Number: GB-GALDERMA-GB14001332

PATIENT
  Age: 24 Year
  Sex: Female
  Weight: 104 kg

DRUGS (5)
  1. BPO [Suspect]
     Dates: start: 20140328
  2. ERYTHROMYCIN [Concomitant]
     Dates: start: 20131202, end: 20140106
  3. LORATADINE [Concomitant]
     Dates: start: 20140101
  4. NITROFURANTOIN [Concomitant]
     Dates: start: 20140219, end: 20140222
  5. PREDNISOLONE [Concomitant]
     Dates: start: 20140401

REACTIONS (1)
  - Hypersensitivity [Not Recovered/Not Resolved]
